FAERS Safety Report 16824456 (Version 3)
Quarter: 2019Q4

REPORT INFORMATION
  Report Type: Report from Study
  Country: US (occurrence: US)
  Receive Date: 20190918
  Receipt Date: 20191213
  Transmission Date: 20200122
  Serious: Yes (Hospitalization)
  Sender: FDA-Public Use
  Company Number: PHEH2019US038365

PATIENT
  Age: 55 Year
  Sex: Male

DRUGS (1)
  1. COSENTYX [Suspect]
     Active Substance: SECUKINUMAB
     Indication: PSORIASIS
     Dosage: 300 MG, WEEKS 0, 1, 2, 3, AND 4. THEN ONCE EVERY 4 WEEKS THEREAFTER
     Route: 058
     Dates: start: 20190901

REACTIONS (7)
  - Rash [Unknown]
  - Incorrect dose administered [Unknown]
  - Asthenia [Unknown]
  - Bacterial infection [Recovering/Resolving]
  - Psoriasis [Recovering/Resolving]
  - Diarrhoea [Recovering/Resolving]
  - Injection site pain [Unknown]

NARRATIVE: CASE EVENT DATE: 20190901
